FAERS Safety Report 25061535 (Version 1)
Quarter: 2025Q1

REPORT INFORMATION
  Report Type: Spontaneous
  Country: BR (occurrence: BR)
  Receive Date: 20250311
  Receipt Date: 20250311
  Transmission Date: 20250408
  Serious: Yes (Other)
  Sender: JOHNSON AND JOHNSON
  Company Number: BR-JNJFOC-20250280264

PATIENT
  Age: 73 Year
  Sex: Male

DRUGS (1)
  1. RYBREVANT [Suspect]
     Active Substance: AMIVANTAMAB-VMJW
     Indication: Product used for unknown indication
     Route: 041

REACTIONS (5)
  - Metastatic neoplasm [Unknown]
  - Dyspnoea [Unknown]
  - Oedema peripheral [Unknown]
  - Hypoalbuminaemia [Unknown]
  - Rash [Recovered/Resolved]
